FAERS Safety Report 17268751 (Version 1)
Quarter: 2020Q1

REPORT INFORMATION
  Report Type: Spontaneous
  Country: CN (occurrence: CN)
  Receive Date: 20200114
  Receipt Date: 20200114
  Transmission Date: 20200409
  Serious: Yes (Other)
  Sender: FDA-Public Use
  Company Number: CN-AGG-01-2020-2172

PATIENT

DRUGS (11)
  1. HEPARIN SODIUM. [Concomitant]
     Active Substance: HEPARIN SODIUM
     Dosage: INJECTED (100 U/KG) VIA SIDE TUBE OF SHEATHING CANAL DURING PCI
     Route: 040
  2. CLOPIDOGREL [Concomitant]
     Active Substance: CLOPIDOGREL BISULFATE
     Dosage: POST PCI
     Route: 048
  3. AGGRASTAT [Suspect]
     Active Substance: TIROFIBAN HYDROCHLORIDE
     Indication: ANTIPLATELET THERAPY
     Dosage: MAINTENANCE DOSE 0.15 MCG/KG/MIN FOR 24 HOURS - 36 HOURS
     Route: 041
  4. CLOPIDOGREL [Concomitant]
     Active Substance: CLOPIDOGREL BISULFATE
     Dosage: 300 MG TWO HOURS BEFORE SURGERY
     Route: 048
  5. LOW MOLECULAR WEIGHT HEPARIN [Concomitant]
     Active Substance: UNSPECIFIED INGREDIENT
     Dosage: 5 DAYS POST PCI
     Route: 058
  6. AGGRASTAT [Suspect]
     Active Substance: TIROFIBAN HYDROCHLORIDE
     Indication: ANTIPLATELET THERAPY
     Dosage: INTRAVENOUS 30 MINUTES BEFORE PCI (DOSE UNKNOWN)
     Route: 041
  7. AGGRASTAT [Suspect]
     Active Substance: TIROFIBAN HYDROCHLORIDE
     Indication: ANTIPLATELET THERAPY
     Dosage: INTRAVENOUS INJECTION 5 MINUTES BEFORE PCI
     Route: 040
  8. LOW MOLECULAR WEIGHT HEPARIN [Concomitant]
     Active Substance: UNSPECIFIED INGREDIENT
     Dosage: 12 HOURS POST PCI
     Route: 058
  9. ASPIRIN. [Concomitant]
     Active Substance: ASPIRIN
     Dosage: 300 MG TWO HOURS BEFORE SURGERY
     Route: 048
  10. ASPIRIN. [Concomitant]
     Active Substance: ASPIRIN
     Dosage: POST PCI
     Route: 048
  11. LOW MOLECULAR WEIGHT HEPARIN [Concomitant]
     Active Substance: UNSPECIFIED INGREDIENT
     Dosage: 3 DAYS POST PCI
     Route: 058

REACTIONS (1)
  - Coronary revascularisation [Recovered/Resolved]
